FAERS Safety Report 6106505-X (Version None)
Quarter: 2009Q1

REPORT INFORMATION
  Report Type: 
  Country: None (occurrence: None)
  Receive Date: 20090306
  Receipt Date: 20090227
  Transmission Date: 20090719
  Serious: Yes (Hospitalization)
  Sender: FDA-Public Use
  Company Number: US-GENENTECH-278301

PATIENT
  Sex: Female
  Weight: 63.492 kg

DRUGS (1)
  1. XOLAIR [Suspect]
     Indication: DRUG USE FOR UNKNOWN INDICATION
     Dosage: 450 MG, Q2W
     Dates: start: 20070424

REACTIONS (1)
  - CEREBROVASCULAR ACCIDENT [None]
